FAERS Safety Report 12628779 (Version 1)
Quarter: 2016Q3

REPORT INFORMATION
  Report Type: Report from Study
  Country: DE (occurrence: DE)
  Receive Date: 20160808
  Receipt Date: 20160808
  Transmission Date: 20161109
  Serious: Yes (Hospitalization)
  Sender: FDA-Public Use
  Company Number: DE-ROCHE-1808537

PATIENT
  Age: 76 Year
  Sex: Male

DRUGS (3)
  1. LEFLUNOMID [Concomitant]
     Active Substance: LEFLUNOMIDE
     Route: 065
     Dates: start: 20141211
  2. LEFLUNOMID [Concomitant]
     Active Substance: LEFLUNOMIDE
     Indication: RHEUMATOID ARTHRITIS
     Route: 065
     Dates: start: 20080117
  3. TOCILIZUMAB [Suspect]
     Active Substance: TOCILIZUMAB
     Indication: RHEUMATOID ARTHRITIS
     Route: 065
     Dates: start: 201504, end: 201508

REACTIONS (4)
  - Leukopenia [Unknown]
  - Skin ulcer [Unknown]
  - Erysipelas [Unknown]
  - Pyrexia [Unknown]

NARRATIVE: CASE EVENT DATE: 20151017
